FAERS Safety Report 10389069 (Version 1)
Quarter: 2014Q3

REPORT INFORMATION
  Report Type: Report from Study
  Country: NL (occurrence: NL)
  Receive Date: 20140817
  Receipt Date: 20140817
  Transmission Date: 20150326
  Serious: Yes (Hospitalization, Other)
  Sender: FDA-Public Use
  Company Number: PHHY2014NL098849

PATIENT
  Age: 70 Year
  Sex: Female

DRUGS (7)
  1. BEVACIZUMAB [Suspect]
     Active Substance: BEVACIZUMAB
     Indication: COLON CANCER
     Dosage: 400 MG,1 IN 21 D
     Route: 042
     Dates: start: 20131219
  2. 5-FLUOROURACIL [Suspect]
     Active Substance: FLUOROURACIL
     Indication: COLON CANCER
     Dosage: 1800 MG, UNK
     Route: 042
     Dates: start: 20130417
  3. 5-FLUOROURACIL [Suspect]
     Active Substance: FLUOROURACIL
     Dosage: 600 MG, UNK
     Route: 042
     Dates: start: 20130417
  4. OXALIPLATIN. [Suspect]
     Active Substance: OXALIPLATIN
     Indication: COLON CANCER
     Dosage: 130 MG, UNK
     Route: 042
     Dates: start: 20140417
  5. OXALIPLATIN. [Suspect]
     Active Substance: OXALIPLATIN
     Dosage: 65 MG, UNK
     Route: 042
     Dates: start: 20140528
  6. CAPECITABINE [Suspect]
     Active Substance: CAPECITABINE
     Dosage: 1150MG 2DD
     Route: 042
     Dates: start: 20140313
  7. CAPECITABINE [Suspect]
     Active Substance: CAPECITABINE
     Indication: COLON CANCER
     Dosage: 1500 MG, 2DD
     Route: 048
     Dates: start: 20131219

REACTIONS (2)
  - C-reactive protein increased [Unknown]
  - Diarrhoea [Recovered/Resolved]
